FAERS Safety Report 5047145-3 (Version None)
Quarter: 2006Q3

REPORT INFORMATION
  Report Type: 
  Country: None (occurrence: None)
  Receive Date: 20060703
  Receipt Date: 20060624
  Transmission Date: 20061208
  Serious: Yes (Other)
  Sender: FDA-Public Use
  Company Number: 2006080852

PATIENT
  Sex: Male

DRUGS (1)
  1. REACTINE SYRUP (CETIRIZINE) [Suspect]
     Dates: start: 20060624

REACTIONS (1)
  - ILL-DEFINED DISORDER [None]
